FAERS Safety Report 7167540-6 (Version None)
Quarter: 2010Q4

REPORT INFORMATION
  Report Type: 
  Country: None (occurrence: None)
  Receive Date: 20101216
  Receipt Date: 20100315
  Transmission Date: 20110411
  Serious: No
  Sender: FDA-Public Use
  Company Number: A0850210A

PATIENT
  Age: 27 Year
  Sex: Female

DRUGS (2)
  1. COMMIT [Suspect]
  2. NICOTINE POLACRILEX [Suspect]

REACTIONS (6)
  - DRUG ADMINISTRATION ERROR [None]
  - DYSPEPSIA [None]
  - NICOTINE DEPENDENCE [None]
  - RETCHING [None]
  - SINUS CONGESTION [None]
  - VOMITING [None]
